FAERS Safety Report 25180133 (Version 20)
Quarter: 2025Q3

REPORT INFORMATION
  Report Type: Spontaneous
  Country: EU (occurrence: EU)
  Receive Date: 20250409
  Receipt Date: 20250715
  Transmission Date: 20251020
  Serious: Yes (Other)
  Sender: UCB
  Company Number: EU-SANDOZ-SDZ2025PL019670

PATIENT
  Age: 42 Year
  Sex: Male

DRUGS (45)
  1. CERTOLIZUMAB PEGOL [Suspect]
     Active Substance: CERTOLIZUMAB PEGOL
     Indication: Product used for unknown indication
  2. CERTOLIZUMAB PEGOL [Suspect]
     Active Substance: CERTOLIZUMAB PEGOL
  3. BIMEKIZUMAB [Suspect]
     Active Substance: BIMEKIZUMAB
     Indication: Product used for unknown indication
  4. BIMEKIZUMAB [Suspect]
     Active Substance: BIMEKIZUMAB
  5. ACITRETIN [Suspect]
     Active Substance: ACITRETIN
     Indication: Psoriasis
     Dosage: 0.5 MG/KG (0.5 MG/KG B.W)
     Dates: start: 201102, end: 2013
  6. ACITRETIN [Suspect]
     Active Substance: ACITRETIN
     Dosage: 0.5 MG/KG (0.5 MG/KG B.W)
  7. ACITRETIN [Suspect]
     Active Substance: ACITRETIN
     Dosage: 0.5 MG/KG (0.5 MG/KG B.W)
  8. ACITRETIN [Suspect]
     Active Substance: ACITRETIN
     Dosage: 0.5 MG/KG, BIW, 1 MG/KG, QW (0.5 MG /KG, BIW (0.5 MILLIGRAM/KILOGRAM (0.5 MG /KG B.W)), BIW)
  9. ACITRETIN [Suspect]
     Active Substance: ACITRETIN
     Dosage: 1 MG/KG, QW, (0.5 MG/KG, BIW (0.5 MILLIGRAM /KILOGRAM (0.5 MG /KG B.W)), BIW))
  10. REMICADE [Suspect]
     Active Substance: INFLIXIMAB
     Indication: Product used for unknown indication
     Route: 042
  11. REMICADE [Suspect]
     Active Substance: INFLIXIMAB
     Route: 042
  12. IXEKIZUMAB [Suspect]
     Active Substance: IXEKIZUMAB
     Indication: Product used for unknown indication
     Route: 042
  13. IXEKIZUMAB [Suspect]
     Active Substance: IXEKIZUMAB
     Route: 042
  14. ETANERCEPT [Suspect]
     Active Substance: ETANERCEPT
     Indication: Product used for unknown indication
     Dates: start: 201304
  15. ETANERCEPT [Suspect]
     Active Substance: ETANERCEPT
  16. SECUKINUMAB [Suspect]
     Active Substance: SECUKINUMAB
     Indication: Product used for unknown indication
  17. TILDRAKIZUMAB [Suspect]
     Active Substance: TILDRAKIZUMAB
     Indication: Product used for unknown indication
  18. TILDRAKIZUMAB [Suspect]
     Active Substance: TILDRAKIZUMAB
  19. METHOTREXATE [Suspect]
     Active Substance: METHOTREXATE
     Indication: Psoriasis
     Dosage: 20 MG, QW
     Route: 048
  20. METHOTREXATE [Suspect]
     Active Substance: METHOTREXATE
     Dosage: 20 MG, QW
     Route: 048
  21. METHOTREXATE [Suspect]
     Active Substance: METHOTREXATE
     Dosage: 20 MG, QW
     Route: 048
  22. METHOTREXATE [Suspect]
     Active Substance: METHOTREXATE
     Dosage: 20 MG, QW
     Route: 048
  23. METHOTREXATE [Suspect]
     Active Substance: METHOTREXATE
     Dosage: 20 MG, QW
     Route: 048
  24. STELARA [Suspect]
     Active Substance: USTEKINUMAB
     Indication: Product used for unknown indication
     Route: 058
  25. SKYRIZI [Suspect]
     Active Substance: RISANKIZUMAB-RZAA
     Indication: Product used for unknown indication
     Route: 058
  26. SKYRIZI [Suspect]
     Active Substance: RISANKIZUMAB-RZAA
  27. TREMFYA [Suspect]
     Active Substance: GUSELKUMAB
     Indication: Product used for unknown indication
     Route: 058
  28. TREMFYA [Suspect]
     Active Substance: GUSELKUMAB
     Route: 058
  29. INFLIXIMAB [Suspect]
     Active Substance: INFLIXIMAB
     Indication: Product used for unknown indication
     Route: 058
  30. INFLIXIMAB [Suspect]
     Active Substance: INFLIXIMAB
     Route: 042
  31. ADALIMUMAB [Suspect]
     Active Substance: ADALIMUMAB
     Indication: Psoriasis
     Dosage: 20 MILLIGRAM, WEEKLY (QW)
     Route: 058
  32. ADALIMUMAB [Suspect]
     Active Substance: ADALIMUMAB
     Dosage: 20 MILLIGRAM, WEEKLY (QW)
     Route: 058
  33. ADALIMUMAB [Suspect]
     Active Substance: ADALIMUMAB
     Dosage: 40 MG (40 MG/2 WEEKS)
     Route: 058
  34. ADALIMUMAB [Suspect]
     Active Substance: ADALIMUMAB
     Dosage: 40 MG, BIW
  35. ADALIMUMAB [Suspect]
     Active Substance: ADALIMUMAB
     Dosage: 80 MG, QW, (40 MG (40 MG/2 WEEKS
  36. ADALIMUMAB [Suspect]
     Active Substance: ADALIMUMAB
     Dosage: 80 MG, QW, (40 MG (40 MG/2 WEEKS)
  37. ADALIMUMAB [Suspect]
     Active Substance: ADALIMUMAB
     Dosage: 80 MG, QW, (40 MG, BIW)
  38. ADALIMUMAB [Suspect]
     Active Substance: ADALIMUMAB
     Dosage: 40 MG, BIW, 80 MG, QW, (40 MG (40 MG /2 WEEKS)
  39. ADALIMUMAB [Suspect]
     Active Substance: ADALIMUMAB
     Dosage: 40 MG, BIW (~80 MG, QW, (40 MG (40 MG /2 WEEKS))
  40. ADALIMUMAB [Suspect]
     Active Substance: ADALIMUMAB
     Dosage: 20 MILLIGRAM, WEEKLY (QW)
     Route: 048
  41. ADALIMUMAB [Suspect]
     Active Substance: ADALIMUMAB
     Dosage: 20 MILLIGRAM, WEEKLY (QW)
     Route: 048
  42. USTEKINUMAB [Suspect]
     Active Substance: USTEKINUMAB
     Indication: Product used for unknown indication
     Route: 058
  43. GUSELKUMAB [Suspect]
     Active Substance: GUSELKUMAB
     Indication: Product used for unknown indication
     Route: 058
  44. GUSELKUMAB [Suspect]
     Active Substance: GUSELKUMAB
  45. WEZLANA [Suspect]
     Active Substance: USTEKINUMAB-AUUB
     Indication: Product used for unknown indication

REACTIONS (3)
  - Condition aggravated [Unknown]
  - Psoriasis [Unknown]
  - Drug ineffective [Unknown]
